FAERS Safety Report 8470250-6 (Version None)
Quarter: 2012Q2

REPORT INFORMATION
  Report Type: 
  Country: None (occurrence: None)
  Receive Date: 20120621
  Receipt Date: 20120621
  Transmission Date: 20120825
  Serious: Yes (Other)
  Sender: FDA-Public Use
  Company Number: None

PATIENT
  Sex: Female

DRUGS (6)
  1. RECLAST [Suspect]
     Indication: OSTEOPOROSIS
     Dosage: ONCE PO
     Route: 048
  2. MAXZIDE [Concomitant]
  3. AMLODIPINE [Concomitant]
  4. FOSINOPRIL SODIUM [Concomitant]
  5. PRASTATIN [Concomitant]
  6. METOPROLO [Concomitant]

REACTIONS (6)
  - PAIN IN EXTREMITY [None]
  - BLISTER [None]
  - SKIN DISORDER [None]
  - ALOPECIA [None]
  - SCAR [None]
  - RENAL DISORDER [None]
